FAERS Safety Report 9039491 (Version 1)
Quarter: 2013Q1

REPORT INFORMATION
  Report Type: Spontaneous
  Country: US (occurrence: None)
  Receive Date: 20130123
  Receipt Date: 20130123
  Transmission Date: 20140127
  Serious: Yes (Other)
  Sender: FDA-Public Use
  Company Number: None

PATIENT
  Sex: Female
  Weight: 63.05 kg

DRUGS (1)
  1. METFORMIN 500MG PO BID [Suspect]
     Indication: TYPE 2 DIABETES MELLITUS
     Dosage: 500MG PO BID
     Route: 048
     Dates: start: 201007, end: 201103

REACTIONS (4)
  - Nausea [None]
  - Abdominal discomfort [None]
  - Diarrhoea [None]
  - Vomiting [None]
